FAERS Safety Report 16643815 (Version 1)
Quarter: 2019Q3

REPORT INFORMATION
  Report Type: Spontaneous
  Country: US (occurrence: US)
  Receive Date: 20190729
  Receipt Date: 20190729
  Transmission Date: 20191004
  Serious: No
  Sender: FDA-Public Use
  Company Number: US-BAYER-2019-135636

PATIENT
  Age: 19 Year
  Sex: Female

DRUGS (1)
  1. KYLEENA [Suspect]
     Active Substance: LEVONORGESTREL
     Dosage: 17.5 MCG/24HR, CONT
     Route: 015
     Dates: start: 20190716, end: 20190716

REACTIONS (4)
  - Post procedural discomfort [None]
  - Complication of device insertion [None]
  - Device use issue [None]
  - Patient-device incompatibility [None]

NARRATIVE: CASE EVENT DATE: 20190716
